FAERS Safety Report 4533287-5 (Version None)
Quarter: 2004Q4

REPORT INFORMATION
  Report Type: 
  Country: None (occurrence: None)
  Receive Date: 20041210
  Receipt Date: 20040823
  Transmission Date: 20050328
  Serious: Yes (Hospitalization)
  Sender: FDA-Public Use
  Company Number: A03200402896

PATIENT
  Age: 73 Year
  Sex: Male
  Weight: 77.1115 kg

DRUGS (8)
  1. ELOXATIN [Suspect]
     Indication: COLON CANCER METASTATIC
     Dosage: 170 MG Q2W - INTRAVENOUS NOS
     Route: 042
     Dates: start: 20040811, end: 20040811
  2. ELOXATIN [Suspect]
     Indication: METASTASES TO LIVER
     Dosage: 170 MG Q2W - INTRAVENOUS NOS
     Route: 042
     Dates: start: 20040811, end: 20040811
  3. ELOXATIN [Suspect]
     Indication: METASTASES TO LUNG
     Dosage: 170 MG Q2W - INTRAVENOUS NOS
     Route: 042
     Dates: start: 20040811, end: 20040811
  4. BEVACIZUMAB [Concomitant]
  5. DEXTROSE [Concomitant]
  6. LEUCOVORIN [Concomitant]
  7. FLUOROURACIL SODIUM [Concomitant]
  8. PRE-MEDICATION NOS [Concomitant]

REACTIONS (8)
  - BRONCHOSPASM [None]
  - CYANOSIS [None]
  - DEPRESSED LEVEL OF CONSCIOUSNESS [None]
  - DYSGEUSIA [None]
  - ERYTHEMA [None]
  - OXYGEN SATURATION DECREASED [None]
  - PULSE ABSENT [None]
  - URINARY INCONTINENCE [None]
